FAERS Safety Report 9706663 (Version 1)
Quarter: 2013Q4

REPORT INFORMATION
  Report Type: Report from Study
  Country: CA (occurrence: CA)
  Receive Date: 20131125
  Receipt Date: 20131125
  Transmission Date: 20140711
  Serious: Yes (Hospitalization, Other)
  Sender: FDA-Public Use
  Company Number: CA-JNJFOC-20131111238

PATIENT
  Sex: Female
  Weight: 54.89 kg

DRUGS (1)
  1. REMICADE [Suspect]
     Indication: CROHN^S DISEASE
     Route: 042

REACTIONS (9)
  - Anaphylactic reaction [Unknown]
  - Enterocutaneous fistula [Unknown]
  - Colitis [Unknown]
  - Infection [Unknown]
  - Staphylococcal sepsis [Unknown]
  - Bacteraemia [Unknown]
  - Short-bowel syndrome [Unknown]
  - Scar [Unknown]
  - Abdominal adhesions [Unknown]
